FAERS Safety Report 21300300 (Version 2)
Quarter: 2022Q4

REPORT INFORMATION
  Report Type: Spontaneous
  Country: CN (occurrence: CN)
  Receive Date: 20220907
  Receipt Date: 20221215
  Transmission Date: 20230113
  Serious: Yes (Hospitalization)
  Sender: FDA-Public Use
  Company Number: CN-STRIDES ARCOLAB LIMITED-2022SP011207

PATIENT
  Age: 27 Year
  Sex: Male
  Weight: 106.3 kg

DRUGS (5)
  1. OLANZAPINE [Suspect]
     Active Substance: OLANZAPINE
     Indication: Schizophrenia
     Dosage: 10 MILLIGRAM/DAY
     Route: 065
  2. VALPROATE SODIUM [Suspect]
     Active Substance: VALPROATE SODIUM
     Indication: Schizophrenia
     Dosage: 1 GRAM/DAY
     Route: 065
  3. ARIPIPRAZOLE [Suspect]
     Active Substance: ARIPIPRAZOLE
     Indication: Schizophrenia
     Dosage: UNK
     Route: 065
  4. RISPERIDONE [Suspect]
     Active Substance: RISPERIDONE
     Indication: Schizophrenia
     Dosage: UNK
     Route: 065
  5. ZIPRASIDONE [Suspect]
     Active Substance: ZIPRASIDONE
     Indication: Schizophrenia
     Dosage: UNK
     Route: 065

REACTIONS (2)
  - Obesity [Recovered/Resolved]
  - Type 2 diabetes mellitus [Recovered/Resolved]
